FAERS Safety Report 8354502-6 (Version None)
Quarter: 2012Q2

REPORT INFORMATION
  Report Type: 
  Country: None (occurrence: None)
  Receive Date: 20120511
  Receipt Date: 20120427
  Transmission Date: 20120825
  Serious: Yes (Hospitalization)
  Sender: FDA-Public Use
  Company Number: FR-AMGEN-FRASP2012021951

PATIENT
  Age: 54 Year
  Sex: Female
  Weight: 67 kg

DRUGS (2)
  1. ASPIRIN [Concomitant]
     Dosage: UNK
     Dates: start: 20120301
  2. ENBREL [Suspect]
     Indication: RHEUMATOID ARTHRITIS
     Dosage: 50 MG, WEEKLY
     Dates: start: 20101010, end: 20120328

REACTIONS (9)
  - MALAISE [None]
  - TREMOR [None]
  - INJECTION SITE HAEMORRHAGE [None]
  - PYREXIA [None]
  - BALANCE DISORDER [None]
  - HYPOTENSION [None]
  - DYSSTASIA [None]
  - CHILLS [None]
  - INJECTION SITE REACTION [None]
